FAERS Safety Report 10025722 (Version 1)
Quarter: 2014Q1

REPORT INFORMATION
  Report Type: Spontaneous
  Country: IN (occurrence: IN)
  Receive Date: 20140320
  Receipt Date: 20140320
  Transmission Date: 20141002
  Serious: Yes (Other)
  Sender: FDA-Public Use
  Company Number: IN-ACTAVIS-2014-04991

PATIENT
  Age: 28 Year
  Sex: Male

DRUGS (5)
  1. MORPHINE (UNKNOWN) [Suspect]
     Indication: ANALGESIC THERAPY
     Dosage: UNK
     Route: 065
  2. VINCRISTINE [Concomitant]
     Indication: NON-HODGKIN^S LYMPHOMA
     Dosage: 2 MG, 1/ THREE WEEKS
     Route: 065
  3. CYCLOPHOSPHAMIDE [Concomitant]
     Indication: NON-HODGKIN^S LYMPHOMA
     Dosage: UNK
     Route: 065
  4. DOXORUBICIN [Concomitant]
     Indication: NON-HODGKIN^S LYMPHOMA
     Dosage: UNK
     Route: 065
  5. PREDNISONE [Concomitant]
     Indication: NON-HODGKIN^S LYMPHOMA
     Dosage: UNK
     Route: 065

REACTIONS (1)
  - Somnolence [Unknown]
